FAERS Safety Report 5572464-1 (Version None)
Quarter: 2007Q4

REPORT INFORMATION
  Report Type: 
  Country: None (occurrence: None)
  Receive Date: 20071222
  Receipt Date: 20071214
  Transmission Date: 20080405
  Serious: Yes (Hospitalization)
  Sender: FDA-Public Use
  Company Number: HK-PFIZER INC-2007105715

PATIENT
  Age: 45 Year
  Sex: Female

DRUGS (5)
  1. PRAZOSIN HCL [Suspect]
     Dosage: DAILY DOSE:84MG-FREQ:SINGLE ADMINISTRATION
     Route: 048
  2. NIFEDIPINE [Interacting]
     Dosage: DAILY DOSE:1120MG-FREQ:SINGLE ADMINISTRATION
     Route: 048
  3. METOPROLOL [Interacting]
     Dosage: DAILY DOSE:4200MG-FREQ:SINGLE ADMINISTRATION
     Route: 048
  4. GLICLAZIDE [Interacting]
     Dosage: DAILY DOSE:2240MG-FREQ:SINGLE ADMINISTRATION
     Route: 048
  5. FLUVASTATIN [Interacting]
     Dosage: DAILY DOSE:280MG-FREQ:SINGLE ADMINISTRATION
     Route: 048

REACTIONS (10)
  - ATRIOVENTRICULAR BLOCK FIRST DEGREE [None]
  - CONDITION AGGRAVATED [None]
  - DIZZINESS [None]
  - DRUG INTERACTION [None]
  - HYPOTENSION [None]
  - MULTIPLE DRUG OVERDOSE [None]
  - OVERDOSE [None]
  - RENAL IMPAIRMENT [None]
  - SINUS BRADYCARDIA [None]
  - VOMITING [None]
